FAERS Safety Report 25860617 (Version 1)
Quarter: 2025Q3

REPORT INFORMATION
  Report Type: Spontaneous
  Country: US (occurrence: None)
  Receive Date: 20250929
  Receipt Date: 20250929
  Transmission Date: 20251021
  Serious: Yes (unspecified)
  Sender: FDA-CTU
  Company Number: None

PATIENT
  Sex: Female
  Weight: 76 kg

DRUGS (7)
  1. TRULICITY [Suspect]
     Active Substance: DULAGLUTIDE
     Dates: end: 20250801
  2. INSULIN GLARGINE [Concomitant]
     Active Substance: INSULIN GLARGINE
  3. INSULIN ASPART [Concomitant]
     Active Substance: INSULIN ASPART
  4. LEVOTHYROXINE [Concomitant]
     Active Substance: LEVOTHYROXINE
  5. TELMISARTAN [Concomitant]
     Active Substance: TELMISARTAN
  6. ROSUVASTATIN [Concomitant]
     Active Substance: ROSUVASTATIN
  7. EMPAGLIFLOZIN [Concomitant]
     Active Substance: EMPAGLIFLOZIN

REACTIONS (1)
  - Retinal disorder [None]
